FAERS Safety Report 9581824 (Version 1)
Quarter: 2013Q4

REPORT INFORMATION
  Report Type: Spontaneous
  Country: FR (occurrence: FR)
  Receive Date: 20131002
  Receipt Date: 20131002
  Transmission Date: 20140711
  Serious: Yes (Life-Threatening)
  Sender: FDA-Public Use
  Company Number: FR-PFIZER INC-2013280439

PATIENT
  Age: 74 Year
  Sex: Male

DRUGS (12)
  1. XANAX [Suspect]
     Indication: PREMEDICATION
     Dosage: 0.5 MG, SINGLE
     Route: 048
     Dates: start: 20130308, end: 20130308
  2. HYPNOVEL [Suspect]
     Dosage: 1.5 MG, UNK
     Route: 042
     Dates: start: 20130308, end: 20130308
  3. SUFENTA [Suspect]
     Dosage: 5 UG, UNK
     Route: 042
     Dates: start: 20130308, end: 20130308
  4. DIPRIVAN [Suspect]
     Indication: ANAESTHESIA
     Dosage: 120 MG, UNK
     Route: 042
     Dates: start: 20130308, end: 20130308
  5. ESMERON [Suspect]
     Indication: ANAESTHESIA
     Dosage: 80 MG, UNK
     Route: 042
     Dates: start: 20130308, end: 20130308
  6. CEFOXITIN PANPHARMA [Suspect]
     Indication: ANAESTHESIA
     Dosage: 2 G, UNK
     Route: 042
     Dates: start: 20130308, end: 20130308
  7. TAHOR [Concomitant]
     Dosage: 10 (NO UNITS REPORTED), UNK
  8. SOTALEX [Concomitant]
     Dosage: 40 MG, UNK
  9. KARDEGIC [Concomitant]
     Dosage: 75 (NO UNITS REPORTED), UNK
  10. FURADANTINE [Concomitant]
     Dosage: 50
  11. FURADANTINE [Concomitant]
     Dosage: 50 MG, UNK (50 X2 MG AS REPORTED)
     Dates: start: 20130308
  12. XYLOCAIN-ADRENALIN [Concomitant]
     Dosage: 3 ML, UNK
     Route: 008
     Dates: start: 20130308

REACTIONS (1)
  - Anaphylactic shock [Recovered/Resolved]
